FAERS Safety Report 5341847-7 (Version None)
Quarter: 2007Q2

REPORT INFORMATION
  Report Type: 
  Country: None (occurrence: None)
  Receive Date: 20070601
  Receipt Date: 20070523
  Transmission Date: 20071010
  Serious: Yes (Hospitalization)
  Sender: FDA-Public Use
  Company Number: US-ELI_LILLY_AND_COMPANY-US200705005981

PATIENT

DRUGS (1)
  1. BYETTA [Suspect]
     Dosage: 5 UG, UNK
     Dates: start: 20060101

REACTIONS (3)
  - NAUSEA [None]
  - RENAL FAILURE [None]
  - WEIGHT DECREASED [None]
